FAERS Safety Report 11593265 (Version 1)
Quarter: 2015Q4

REPORT INFORMATION
  Report Type: Spontaneous
  Country: US (occurrence: US)
  Receive Date: 20151005
  Receipt Date: 20151005
  Transmission Date: 20160304
  Serious: Yes (Other)
  Sender: FDA-Public Use
  Company Number: US-PFIZER INC-2015328022

PATIENT
  Age: 8 Year
  Sex: Female
  Weight: 34 kg

DRUGS (3)
  1. SYMBICORT [Concomitant]
     Active Substance: BUDESONIDE\FORMOTEROL FUMARATE DIHYDRATE
     Indication: ASTHMA
     Dosage: 80 ?G, AS NEEDED
     Route: 055
  2. CETIRIZINE [Concomitant]
     Active Substance: CETIRIZINE HYDROCHLORIDE
     Indication: RHINITIS ALLERGIC
     Dosage: 2 TEASPOONS, AS NEEDED
     Route: 048
  3. PFIZERPEN [Suspect]
     Active Substance: PENICILLIN G POTASSIUM
     Indication: ALLERGY TEST
     Dosage: 0.1 ML, SINGLE
     Route: 023
     Dates: start: 20150929, end: 20150929

REACTIONS (2)
  - Administration site necrosis [Not Recovered/Not Resolved]
  - Administration site irritation [Not Recovered/Not Resolved]

NARRATIVE: CASE EVENT DATE: 20150929
